FAERS Safety Report 5943746-6 (Version None)
Quarter: 2008Q4

REPORT INFORMATION
  Report Type: 
  Country: None (occurrence: None)
  Receive Date: 20081106
  Receipt Date: 20081002
  Transmission Date: 20090506
  Serious: No
  Sender: FDA-Public Use
  Company Number: US-BAYER-200835024NA

PATIENT
  Age: 43 Year
  Sex: Male
  Weight: 88 kg

DRUGS (8)
  1. ULTRAVIST 370 [Suspect]
     Indication: COMPUTERISED TOMOGRAM ABDOMEN
     Dosage: TOTAL DAILY DOSE: 120 ML  UNIT DOSE: 500 ML
     Route: 042
     Dates: start: 20081002, end: 20081002
  2. ULTRAVIST 370 [Suspect]
     Route: 048
     Dates: start: 20081002, end: 20081002
  3. COREG [Concomitant]
  4. NEXIUM [Concomitant]
  5. CLONAZEPAM [Concomitant]
  6. PRAVASTATIN [Concomitant]
  7. FISH OIL [Concomitant]
  8. UV370 [Concomitant]
     Indication: PREMEDICATION
     Dates: start: 20081002, end: 20081002

REACTIONS (1)
  - THROAT IRRITATION [None]
